FAERS Safety Report 12569764 (Version 1)
Quarter: 2016Q3

REPORT INFORMATION
  Report Type: Spontaneous
  Country: US (occurrence: None)
  Receive Date: 20160718
  Receipt Date: 20160718
  Transmission Date: 20161109
  Serious: Yes (Disabling)
  Sender: FDA-Public Use
  Company Number: None

PATIENT
  Age: 53 Year
  Sex: Female
  Weight: 68.04 kg

DRUGS (3)
  1. MULTIVITAMIN [Concomitant]
     Active Substance: VITAMINS
  2. HEAD AND SHOULDERS [Suspect]
     Active Substance: PYRITHIONE ZINC
     Indication: POOR PERSONAL HYGIENE
     Route: 061
  3. PREMARIN [Concomitant]
     Active Substance: ESTROGENS, CONJUGATED

REACTIONS (3)
  - Product formulation issue [None]
  - Allergy to metals [None]
  - Rubber sensitivity [None]
